FAERS Safety Report 17931365 (Version 1)
Quarter: 2020Q2

REPORT INFORMATION
  Report Type: Spontaneous
  Country: DE (occurrence: DE)
  Receive Date: 20200623
  Receipt Date: 20200623
  Transmission Date: 20200714
  Serious: Yes (Hospitalization)
  Sender: FDA-Public Use
  Company Number: DE-ALLERGAN-2023735US

PATIENT
  Sex: Female

DRUGS (6)
  1. LUMIGAN [Suspect]
     Active Substance: BIMATOPROST
     Indication: GLAUCOMA
     Dosage: 2 GTT
  2. OMALIZUMAB. [Concomitant]
     Active Substance: OMALIZUMAB
  3. CELESTAMINE [Concomitant]
     Active Substance: BETAMETHASONE\DEXCHLORPHENIRAMINE MALEATE
  4. PREDNISOLONE. [Concomitant]
     Active Substance: PREDNISOLONE
  5. XOLAIR [Concomitant]
     Active Substance: OMALIZUMAB
     Dosage: 150 MG
  6. TAVEGIL [Concomitant]
     Active Substance: CLEMASTINE FUMARATE

REACTIONS (8)
  - Ocular hyperaemia [Unknown]
  - Eye pain [Unknown]
  - Vision blurred [Unknown]
  - Insomnia [Unknown]
  - Ear pain [Unknown]
  - Hypersensitivity [Unknown]
  - Headache [Unknown]
  - Blood pressure increased [Unknown]
